FAERS Safety Report 5513480-5 (Version None)
Quarter: 2007Q4

REPORT INFORMATION
  Report Type: 
  Country: None (occurrence: None)
  Receive Date: 20071112
  Receipt Date: 20071031
  Transmission Date: 20080405
  Serious: Yes (Other)
  Sender: FDA-Public Use
  Company Number: US-PFIZER INC-2007092985

PATIENT
  Sex: Female
  Weight: 56.7 kg

DRUGS (8)
  1. CHANTIX [Suspect]
     Indication: SMOKING CESSATION THERAPY
  2. SEROQUEL [Suspect]
     Indication: AFFECTIVE DISORDER
  3. ALL OTHER THERAPEUTIC PRODUCTS [Concomitant]
  4. PROMETRIUM [Concomitant]
  5. TESTOSTERONE [Concomitant]
     Route: 061
  6. CALCIUM [Concomitant]
  7. VITAMINS [Concomitant]
  8. CYMBALTA [Concomitant]

REACTIONS (4)
  - DEPRESSION [None]
  - FATIGUE [None]
  - HYPERTENSION [None]
  - PREMENSTRUAL SYNDROME [None]
